FAERS Safety Report 6592811-1 (Version None)
Quarter: 2010Q1

REPORT INFORMATION
  Report Type: 
  Country: None (occurrence: None)
  Receive Date: 20100212
  Receipt Date: 20100115
  Transmission Date: 20100710
  Serious: Yes (Other)
  Sender: FDA-Public Use
  Company Number: 2280705-2010-00001

PATIENT
  Age: 45 Year
  Sex: Female

DRUGS (1)
  1. ORAJEL  MOUTH SORE MEDICINE ORAL PAIN RELIEVER FOR MOUTH SORES [Suspect]
     Indication: STOMATITIS
     Dosage: UP TO 4 TIMES/DAY
     Dates: start: 20100106, end: 20100111

REACTIONS (1)
  - FACIAL PALSY [None]
